FAERS Safety Report 15941449 (Version 3)
Quarter: 2020Q1

REPORT INFORMATION
  Report Type: Spontaneous
  Country: US (occurrence: US)
  Receive Date: 20190208
  Receipt Date: 20200310
  Transmission Date: 20200409
  Serious: Yes (Hospitalization, Other)
  Sender: FDA-Public Use
  Company Number: US-ASTRAZENECA-2018SF65845

PATIENT
  Age: 60 Year
  Sex: Female
  Weight: 96.6 kg

DRUGS (30)
  1. NEXIUM [Suspect]
     Active Substance: ESOMEPRAZOLE MAGNESIUM
     Indication: DYSPEPSIA
     Dosage: 40.0MG UNKNOWN
     Route: 048
     Dates: start: 20121105
  2. OMEPRAZOLE. [Suspect]
     Active Substance: OMEPRAZOLE
     Route: 048
  3. PREVACID [Suspect]
     Active Substance: LANSOPRAZOLE
     Route: 065
  4. CETRIZINE [Concomitant]
     Active Substance: CETIRIZINE HYDROCHLORIDE
  5. ZANTAC [Concomitant]
     Active Substance: RANITIDINE HYDROCHLORIDE
     Route: 065
  6. DEXILANT [Suspect]
     Active Substance: DEXLANSOPRAZOLE
     Route: 065
  7. AMLODIPINE [Concomitant]
     Active Substance: AMLODIPINE BESYLATE
  8. BYSTOLIC [Concomitant]
     Active Substance: NEBIVOLOL HYDROCHLORIDE
     Route: 065
  9. NEXIUM [Suspect]
     Active Substance: ESOMEPRAZOLE MAGNESIUM
     Indication: GASTROOESOPHAGEAL REFLUX DISEASE
     Dosage: 40.0MG UNKNOWN
     Route: 048
     Dates: start: 20121105
  10. FAMOTIDINE. [Concomitant]
     Active Substance: FAMOTIDINE
     Route: 065
  11. PRILOSEC OTC [Suspect]
     Active Substance: OMEPRAZOLE MAGNESIUM
     Dosage: GENERIC
     Route: 065
  12. PREVACID 24 HR [Suspect]
     Active Substance: LANSOPRAZOLE
     Route: 065
  13. GABAPENTIN. [Concomitant]
     Active Substance: GABAPENTIN
  14. QUETIAPINE. [Concomitant]
     Active Substance: QUETIAPINE
  15. NEXIUM [Suspect]
     Active Substance: ESOMEPRAZOLE MAGNESIUM
     Indication: GASTROOESOPHAGEAL REFLUX DISEASE
     Dosage: 40.0MG UNKNOWN
     Route: 048
     Dates: start: 20161025
  16. NEXIUM 24HR [Suspect]
     Active Substance: ESOMEPRAZOLE MAGNESIUM
     Route: 048
  17. FLUTICASONE. [Concomitant]
     Active Substance: FLUTICASONE
  18. BENADRYL [Concomitant]
     Active Substance: DIPHENHYDRAMINE HYDROCHLORIDE
     Route: 065
  19. NEXIUM [Suspect]
     Active Substance: ESOMEPRAZOLE MAGNESIUM
     Indication: DYSPEPSIA
     Dosage: 40.0MG UNKNOWN
     Route: 048
     Dates: start: 20160902
  20. NEXIUM [Suspect]
     Active Substance: ESOMEPRAZOLE MAGNESIUM
     Indication: DYSPEPSIA
     Dosage: 40.0MG UNKNOWN
     Route: 048
     Dates: start: 20161025
  21. PRILOSEC OTC [Suspect]
     Active Substance: OMEPRAZOLE MAGNESIUM
     Route: 048
  22. TRAMADOL. [Concomitant]
     Active Substance: TRAMADOL
  23. MELOXICAM. [Concomitant]
     Active Substance: MELOXICAM
  24. SIMVASTATIN. [Concomitant]
     Active Substance: SIMVASTATIN
  25. TRAMADOL. [Concomitant]
     Active Substance: TRAMADOL
  26. NEXIUM [Suspect]
     Active Substance: ESOMEPRAZOLE MAGNESIUM
     Indication: GASTROOESOPHAGEAL REFLUX DISEASE
     Route: 048
     Dates: start: 20130503
  27. NEXIUM [Suspect]
     Active Substance: ESOMEPRAZOLE MAGNESIUM
     Indication: DYSPEPSIA
     Route: 048
     Dates: start: 20130503
  28. NEXIUM [Suspect]
     Active Substance: ESOMEPRAZOLE MAGNESIUM
     Indication: GASTROOESOPHAGEAL REFLUX DISEASE
     Dosage: 40.0MG UNKNOWN
     Route: 048
     Dates: start: 20160902
  29. ZEGERID [Suspect]
     Active Substance: OMEPRAZOLE\SODIUM BICARBONATE
     Route: 065
  30. LEVOTHYROXINE. [Concomitant]
     Active Substance: LEVOTHYROXINE

REACTIONS (4)
  - Renal failure [Not Recovered/Not Resolved]
  - Renal injury [Unknown]
  - Rebound acid hypersecretion [Unknown]
  - Chronic kidney disease [Unknown]

NARRATIVE: CASE EVENT DATE: 2015
